FAERS Safety Report 9456503 (Version 1)
Quarter: 2013Q3

REPORT INFORMATION
  Report Type: Spontaneous
  Country: US (occurrence: US)
  Receive Date: 20130813
  Receipt Date: 20130813
  Transmission Date: 20140515
  Serious: Yes (Other)
  Sender: FDA-Public Use
  Company Number: US-INCYTE CORPORATION-2013IN000978

PATIENT
  Age: 89 Year
  Sex: Female

DRUGS (8)
  1. JAKAFI [Suspect]
     Indication: MYELOFIBROSIS
     Dosage: UNK,UNK,UNK
     Route: 048
     Dates: start: 201107, end: 20120926
  2. JAKAFI [Suspect]
     Dosage: 10 MG (TWO 5 MG TABLETS), QAM + 5 MG, QPM
     Route: 048
     Dates: start: 2012
  3. GABAPENTIN [Concomitant]
     Dosage: 600 MG, TID
  4. DITROPAN [Concomitant]
     Dosage: 2.5 MG, BID JPRN
  5. LASIX [Concomitant]
     Dosage: 20 MG, QD PRN
  6. PRILOSEC [Concomitant]
     Dosage: 20 MG, QD
  7. CALCIUM CITRATE [Concomitant]
     Dosage: 500 MG, BID
  8. LISINOPRIL [Concomitant]
     Dosage: 5 MG, QD

REACTIONS (7)
  - Basosquamous carcinoma [Recovering/Resolving]
  - Platelet count decreased [Not Recovered/Not Resolved]
  - Splenomegaly [Unknown]
  - Neuropathy peripheral [Unknown]
  - Muscle spasms [Recovering/Resolving]
  - Dysphagia [Not Recovered/Not Resolved]
  - Weight increased [Unknown]
